FAERS Safety Report 7351309-3 (Version None)
Quarter: 2011Q1

REPORT INFORMATION
  Report Type: 
  Country: None (occurrence: None)
  Receive Date: 20110314
  Receipt Date: 20110228
  Transmission Date: 20110831
  Serious: Yes (Hospitalization, Other)
  Sender: FDA-Public Use
  Company Number: PHHY2009JP45964

PATIENT
  Sex: Female

DRUGS (3)
  1. IMATINIB MESYLATE [Suspect]
     Dosage: 300 MG, DAILY
     Route: 048
     Dates: start: 20090901
  2. HYPER-CVAD [Concomitant]
  3. IMATINIB MESYLATE [Suspect]
     Indication: ACUTE LYMPHOCYTIC LEUKAEMIA
     Dosage: 400 MG, DAILY
     Route: 048
     Dates: start: 20040701, end: 20090901

REACTIONS (7)
  - DRUG LEVEL INCREASED [None]
  - GASTROINTESTINAL TELANGIECTASIA [None]
  - GASTRIC ANTRAL VASCULAR ECTASIA [None]
  - ANAEMIA [None]
  - RECTAL PERFORATION [None]
  - SEPSIS [None]
  - GASTROINTESTINAL OEDEMA [None]
